FAERS Safety Report 9718286 (Version 1)
Quarter: 2013Q4

REPORT INFORMATION
  Report Type: Spontaneous
  Country: US (occurrence: US)
  Receive Date: 20131125
  Receipt Date: 20131125
  Transmission Date: 20140711
  Serious: No
  Sender: FDA-Public Use
  Company Number: US-VIVUS-2013V1000217

PATIENT
  Age: 52 Year
  Sex: Male
  Weight: 123.03 kg

DRUGS (4)
  1. QSYMIA 7.5MG/46MG [Suspect]
     Indication: WEIGHT DECREASED
     Route: 048
     Dates: start: 20121216, end: 20130316
  2. LISINOPRIL [Concomitant]
     Indication: HYPERTENSION
     Dates: start: 2010
  3. HYDROCHLOROTHIAZIDE [Concomitant]
     Indication: HYPERTENSION
     Dates: start: 2010
  4. HUMIRA [Concomitant]
     Indication: PSORIASIS
     Dates: start: 2011

REACTIONS (1)
  - Bronchitis [Recovering/Resolving]
